FAERS Safety Report 5721795-0 (Version None)
Quarter: 2008Q2

REPORT INFORMATION
  Report Type: 
  Country: None (occurrence: None)
  Receive Date: 20080429
  Receipt Date: 20070420
  Transmission Date: 20081010
  Serious: No
  Sender: FDA-Public Use
  Company Number: US-ASTRAZENECA-2007UW07886

PATIENT
  Age: 67 Year
  Sex: Female
  Weight: 100.7 kg

DRUGS (9)
  1. NEXIUM [Suspect]
     Indication: GASTROOESOPHAGEAL REFLUX DISEASE
     Route: 048
  2. NEXIUM [Suspect]
     Indication: HIATUS HERNIA
     Route: 048
  3. TENORMIN [Concomitant]
  4. LEXAPRO [Concomitant]
  5. AVAPRO [Concomitant]
  6. ALEVE [Concomitant]
  7. FISH OIL [Concomitant]
  8. VITAMINS [Concomitant]
  9. NORVASC [Concomitant]

REACTIONS (1)
  - ABDOMINAL RIGIDITY [None]
